FAERS Safety Report 7510213-8 (Version None)
Quarter: 2011Q2

REPORT INFORMATION
  Report Type: 
  Country: None (occurrence: None)
  Receive Date: 20110527
  Receipt Date: 20101107
  Transmission Date: 20111010
  Serious: No
  Sender: FDA-Public Use
  Company Number: US-BAYER-201040925NA

PATIENT
  Age: 39 Year
  Sex: Female

DRUGS (3)
  1. QUASENCE [Concomitant]
  2. AVELOX [Suspect]
     Indication: SINUSITIS
     Dosage: 400 MG, QD
     Route: 048
     Dates: start: 20101104
  3. CLARINEX-D [Concomitant]
     Indication: NASAL CONGESTION
     Route: 048

REACTIONS (1)
  - NAUSEA [None]
